FAERS Safety Report 5689866-5 (Version None)
Quarter: 2008Q1

REPORT INFORMATION
  Report Type: 
  Country: None (occurrence: None)
  Receive Date: 20080331
  Receipt Date: 20080331
  Transmission Date: 20080703
  Serious: Yes (Hospitalization)
  Sender: FDA-Public Use
  Company Number: None

PATIENT
  Sex: Female
  Weight: 45.2 kg

DRUGS (1)
  1. CISPLATIN [Suspect]
     Dosage: 303 MG
     Dates: end: 20080317

REACTIONS (2)
  - NAUSEA [None]
  - VOMITING [None]
